FAERS Safety Report 16658829 (Version 3)
Quarter: 2020Q3

REPORT INFORMATION
  Report Type: Spontaneous
  Country: US (occurrence: US)
  Receive Date: 20190801
  Receipt Date: 20200826
  Transmission Date: 20201102
  Serious: Yes (Death, Hospitalization)
  Sender: FDA-Public Use
  Company Number: US-VIFOR (INTERNATIONAL) INC.-VIT-2019-07378

PATIENT
  Age: 81 Year
  Sex: Male

DRUGS (1)
  1. VELTASSA [Suspect]
     Active Substance: PATIROMER
     Indication: HYPERKALAEMIA
     Route: 048
     Dates: start: 20160330

REACTIONS (3)
  - Infection [Not Recovered/Not Resolved]
  - Death [Fatal]
  - Limb operation [Not Recovered/Not Resolved]

NARRATIVE: CASE EVENT DATE: 20190901
